FAERS Safety Report 17112856 (Version 3)
Quarter: 2020Q1

REPORT INFORMATION
  Report Type: Spontaneous
  Country: DK (occurrence: DK)
  Receive Date: 20191204
  Receipt Date: 20200220
  Transmission Date: 20200409
  Serious: Yes (Other)
  Sender: FDA-Public Use
  Company Number: NVSC2019DK058113

PATIENT
  Age: 71 Year
  Sex: Male

DRUGS (6)
  1. ITRACONAZOLE. [Concomitant]
     Active Substance: ITRACONAZOLE
     Indication: TRICHOPHYTOSIS
     Dosage: SYSTEMIC ROUTE
     Route: 065
  2. TERBINAFINE HYDROCHLORIDE. [Suspect]
     Active Substance: TERBINAFINE HYDROCHLORIDE
     Indication: TRICHOPHYTOSIS
     Dosage: UNK SYSTEMIC, 2 COURSES
     Route: 048
     Dates: start: 2008
  3. TERBINAFINE HYDROCHLORIDE. [Suspect]
     Active Substance: TERBINAFINE HYDROCHLORIDE
     Indication: TRICHOPHYTOSIS
     Dosage: UNK
     Route: 061
     Dates: start: 2009
  4. GRISEOFULVIN. [Concomitant]
     Active Substance: GRISEOFULVIN
     Indication: TRICHOPHYTOSIS
     Dosage: SYSTEMIC ROUTE
     Route: 065
  5. AMOROLFINE [Concomitant]
     Active Substance: AMOROLFINE
     Indication: TRICHOPHYTOSIS
     Dosage: UNK
     Route: 061
  6. KETOCONAZOLE. [Concomitant]
     Active Substance: KETOCONAZOLE
     Indication: TRICHOPHYTOSIS
     Dosage: UNK
     Route: 065

REACTIONS (2)
  - Pathogen resistance [Unknown]
  - Drug ineffective [Unknown]
